FAERS Safety Report 8170287-0 (Version None)
Quarter: 2012Q1

REPORT INFORMATION
  Report Type: 
  Country: None (occurrence: None)
  Receive Date: 20120228
  Receipt Date: 20120223
  Transmission Date: 20120608
  Serious: Yes (Death, Hospitalization)
  Sender: FDA-Public Use
  Company Number: PHHY2011BR110538

PATIENT
  Sex: Female

DRUGS (5)
  1. METFORMIN HCL [Concomitant]
     Dosage: 850 MG, UNK
     Route: 048
  2. EXELON [Suspect]
     Indication: DEMENTIA ALZHEIMER'S TYPE
     Dosage: 4.5 MG, BID
     Route: 048
  3. HYDROCHLOROTHIAZIDE [Concomitant]
     Indication: HYPERTENSION
     Dosage: HALF TABLET
  4. INSULIN [Concomitant]
     Dosage: 50 UNITS IN THE MORNING, 20 UNITS AT NIGHT
     Route: 058
  5. CAPTOPRIL [Concomitant]
     Indication: CARDIAC DISORDER
     Dosage: 2 DF, DAY
     Route: 048

REACTIONS (4)
  - CARDIAC ARREST [None]
  - ILEUS PARALYTIC [None]
  - DEMENTIA ALZHEIMER'S TYPE [None]
  - RENAL DISORDER [None]
